FAERS Safety Report 6391521-3 (Version None)
Quarter: 2009Q4

REPORT INFORMATION
  Report Type: 
  Country: None (occurrence: None)
  Receive Date: 20091006
  Receipt Date: 20091006
  Transmission Date: 20100525
  Serious: Yes (Other)
  Sender: FDA-Public Use
  Company Number: None

PATIENT
  Age: 12 Year
  Sex: Male
  Weight: 55.3388 kg

DRUGS (1)
  1. OXYCODONE 5/APAP 500 [Suspect]
     Indication: MUSCLE STRAIN
     Dosage: 1 TABLET  1 TIME PO
     Route: 048
     Dates: start: 20090924, end: 20090924

REACTIONS (5)
  - ABNORMAL BEHAVIOUR [None]
  - AGGRESSION [None]
  - AMNESIA [None]
  - HALLUCINATION [None]
  - SELF INJURIOUS BEHAVIOUR [None]
